FAERS Safety Report 17636689 (Version 1)
Quarter: 2020Q2

REPORT INFORMATION
  Report Type: Spontaneous
  Country: GB (occurrence: GB)
  Receive Date: 20200407
  Receipt Date: 20200407
  Transmission Date: 20200713
  Serious: Yes (Other)
  Sender: FDA-Public Use
  Company Number: GB-TEVA-2020-GB-1219841

PATIENT
  Age: 70 Year
  Sex: Female
  Weight: 75.6 kg

DRUGS (4)
  1. ATORVASTATIN [Suspect]
     Active Substance: ATORVASTATIN
     Indication: HYPERLIPIDAEMIA
     Dosage: 20 MG
     Route: 048
     Dates: start: 20181017, end: 20191119
  2. FELODIPINE. [Concomitant]
     Active Substance: FELODIPINE
     Dosage: 5 MG
     Dates: start: 2007
  3. BENDROFLUMETHIAZIDE [Concomitant]
     Active Substance: BENDROFLUMETHIAZIDE
     Dosage: 2.5 MG
     Dates: start: 201904
  4. ZOPICLONE [Concomitant]
     Active Substance: ZOPICLONE
     Dates: start: 2015

REACTIONS (4)
  - Myalgia [Recovered/Resolved with Sequelae]
  - Fatigue [Recovered/Resolved with Sequelae]
  - Pruritus [Recovered/Resolved with Sequelae]
  - Idiopathic urticaria [Recovered/Resolved with Sequelae]
